FAERS Safety Report 9985278 (Version 1)
Quarter: 2014Q1

REPORT INFORMATION
  Report Type: Report from Study
  Country: US (occurrence: US)
  Receive Date: 20140307
  Receipt Date: 20140307
  Transmission Date: 20141002
  Serious: Yes (Other)
  Sender: FDA-Public Use
  Company Number: US-ABBVIE-14P-163-1185509-00

PATIENT
  Age: 24 Year
  Sex: Male

DRUGS (2)
  1. HUMIRA [Suspect]
     Indication: PSORIASIS
     Dates: start: 20131207, end: 20131207
  2. STOOL SOFTENERS [Concomitant]

REACTIONS (5)
  - Tibia fracture [Recovering/Resolving]
  - Fibula fracture [Recovering/Resolving]
  - Road traffic accident [Recovering/Resolving]
  - Contusion [Recovering/Resolving]
  - Presyncope [Recovered/Resolved]
